FAERS Safety Report 6821687-X (Version None)
Quarter: 2010Q3

REPORT INFORMATION
  Report Type: 
  Country: None (occurrence: None)
  Receive Date: 20100707
  Receipt Date: 20090529
  Transmission Date: 20110219
  Serious: No
  Sender: FDA-Public Use
  Company Number: US-PFIZER INC-2009207609

PATIENT
  Sex: Male
  Weight: 82.1 kg

DRUGS (6)
  1. VISTARIL [Suspect]
     Indication: ALLERGY TO ANIMAL
     Dosage: 50 MG, 4X/DAY
     Dates: start: 19880101
  2. DIAZEPAM [Concomitant]
  3. SALBUTAMOL [Concomitant]
  4. PREVACID [Concomitant]
     Dosage: 300 MG, 2X/DAY
  5. VIAGRA [Concomitant]
     Indication: ERECTILE DYSFUNCTION
     Dosage: 300MG/DAILY
  6. MORPHINE [Concomitant]
     Dosage: 300MG/DAILY

REACTIONS (2)
  - DYSKINESIA [None]
  - MYOCLONUS [None]
